FAERS Safety Report 7397573-6 (Version None)
Quarter: 2011Q1

REPORT INFORMATION
  Report Type: 
  Country: None (occurrence: None)
  Receive Date: 20110328
  Receipt Date: 20110316
  Transmission Date: 20110831
  Serious: No
  Sender: FDA-Public Use
  Company Number: 2011-00109

PATIENT
  Sex: Female

DRUGS (1)
  1. ZICAM ALLERGY RELIEF NASAL GEL [Suspect]
     Route: 045

REACTIONS (2)
  - AGEUSIA [None]
  - ANOSMIA [None]
